FAERS Safety Report 20189952 (Version 2)
Quarter: 2022Q1

REPORT INFORMATION
  Report Type: Spontaneous
  Country: JP (occurrence: JP)
  Receive Date: 20211215
  Receipt Date: 20220126
  Transmission Date: 20220424
  Serious: Yes (Other)
  Sender: FDA-Public Use
  Company Number: JP-dspharma-2021DSP019454AA

PATIENT
  Age: 7 Decade
  Sex: Female

DRUGS (7)
  1. LATUDA [Suspect]
     Active Substance: LURASIDONE HYDROCHLORIDE
     Indication: Schizophrenia
     Dosage: 20 MG, QD
     Route: 048
  2. LATUDA [Suspect]
     Active Substance: LURASIDONE HYDROCHLORIDE
     Dosage: 30 MG, QD
     Route: 048
  3. LATUDA [Suspect]
     Active Substance: LURASIDONE HYDROCHLORIDE
     Dosage: 40 MG, QD
     Route: 048
  4. LATUDA [Suspect]
     Active Substance: LURASIDONE HYDROCHLORIDE
     Dosage: 60 MG, QD
     Route: 048
  5. LATUDA [Suspect]
     Active Substance: LURASIDONE HYDROCHLORIDE
     Dosage: 80 MG, QD
     Route: 048
  6. BLONANSERIN [Suspect]
     Active Substance: BLONANSERIN
     Indication: Schizophrenia
     Dosage: 1-2MG, QD, FOR SEVERAL YEARS
     Route: 048
  7. BLONANSERIN [Suspect]
     Active Substance: BLONANSERIN
     Dosage: 8 MG, QD
     Route: 048

REACTIONS (11)
  - Somatic hallucination [Not Recovered/Not Resolved]
  - Hallucination, auditory [Not Recovered/Not Resolved]
  - Cognitive disorder [Unknown]
  - Hallucination, auditory [Recovering/Resolving]
  - Energy increased [Unknown]
  - Malaise [Unknown]
  - Psychiatric symptom [Unknown]
  - Malaise [Recovered/Resolved]
  - Somnolence [Unknown]
  - Off label use [Unknown]
  - Prescribed underdose [Unknown]
